FAERS Safety Report 25682179 (Version 2)
Quarter: 2025Q3

REPORT INFORMATION
  Report Type: Spontaneous
  Country: EU (occurrence: EU)
  Receive Date: 20250814
  Receipt Date: 20250824
  Transmission Date: 20251020
  Serious: Yes (Hospitalization, Other)
  Sender: SANOFI AVENTIS
  Company Number: None

PATIENT
  Age: 34 Year
  Sex: Male
  Weight: 62 kg

DRUGS (20)
  1. COLCHICINE [Interacting]
     Active Substance: COLCHICINE
     Indication: Gouty arthritis
     Dosage: 1 MG, TID
     Dates: start: 20091020
  2. COLCHICINE [Interacting]
     Active Substance: COLCHICINE
     Dosage: 1 MG, BID
     Dates: start: 20091021, end: 20091022
  3. COLCHICINE [Interacting]
     Active Substance: COLCHICINE
     Dosage: 1 MG, BID
     Dates: start: 20091022, end: 20091023
  4. COLCHICINE [Interacting]
     Active Substance: COLCHICINE
     Dosage: 1 MG, QD
     Dates: start: 20091023, end: 20091028
  5. AZITHROMYCIN [Interacting]
     Active Substance: AZITHROMYCIN
     Indication: Bronchiolitis
     Dosage: 250 MG, QD
  6. EVEROLIMUS [Suspect]
     Active Substance: EVEROLIMUS
     Indication: Prophylaxis against transplant rejection
     Dosage: 1 MG, QD
  7. CYCLOSPORINE [Interacting]
     Active Substance: CYCLOSPORINE
     Indication: Prophylaxis against transplant rejection
     Dosage: 170 MG, BID
  8. PRAVASTATIN [Interacting]
     Active Substance: PRAVASTATIN
     Indication: Coronary artery disease
     Dosage: 20 MG, QD
  9. ESOMEPRAZOLE [Concomitant]
     Active Substance: ESOMEPRAZOLE
  10. HYDROCORTISONE [Concomitant]
     Active Substance: HYDROCORTISONE
     Indication: Prophylaxis against transplant rejection
     Dosage: 20 MG, QD
  11. NICORANDIL [Concomitant]
     Active Substance: NICORANDIL
     Indication: Coronary artery disease
     Dosage: 10 MG, QD
  12. IRBESARTAN [Concomitant]
     Active Substance: IRBESARTAN
     Indication: Coronary artery disease
     Dosage: 150 MG, QD
  13. COTRIMOXAZOLE [Concomitant]
     Active Substance: SULFAMETHOXAZOLE\TRIMETHOPRIM
     Dosage: 3 DF, QW, 400 MG/80 MG
  14. ALPHA-TOCOPHEROL [Concomitant]
     Active Substance: .ALPHA.-TOCOPHEROL
     Dosage: 500 MG, QD
  15. CALCIUM [Concomitant]
     Active Substance: CALCIUM
     Dosage: 1 G, QD
  16. CHOLECALCIFEROL [Concomitant]
     Active Substance: CHOLECALCIFEROL
     Dosage: 880 IU, QD
  17. FERROUS ASCORBATE [Concomitant]
     Active Substance: FERROUS ASCORBATE
     Dosage: 66 MG, QD
  18. LYSINE ACETYLSALICYLATE [Concomitant]
     Active Substance: ASPIRIN DL-LYSINE
     Indication: Coronary artery disease
     Dosage: 75 MG, QD
  19. PANCREATIN [Concomitant]
     Active Substance: PANCRELIPASE
     Dosage: 250000 IU, QD
  20. COLISTIN SULFATE [Concomitant]
     Active Substance: COLISTIN SULFATE
     Dosage: 2 DF, QD

REACTIONS (20)
  - Rhabdomyolysis [Recovered/Resolved]
  - Hepatic cytolysis [Recovered/Resolved]
  - Drug interaction [Recovered/Resolved]
  - Cough [Recovered/Resolved]
  - Dyspnoea [Recovered/Resolved]
  - General physical health deterioration [Recovered/Resolved]
  - Haemoptysis [Recovered/Resolved]
  - Hyperleukocytosis [Recovered/Resolved]
  - Lymphopenia [Recovered/Resolved]
  - Diarrhoea [Recovered/Resolved]
  - Toxicity to various agents [Recovered/Resolved]
  - Inferior vena cava dilatation [Recovered/Resolved]
  - Azotaemia [Recovered/Resolved]
  - Hypercreatininaemia [Recovered/Resolved]
  - Neutropenia [Recovered/Resolved]
  - Multiple organ dysfunction syndrome [Recovering/Resolving]
  - Renal failure [Recovered/Resolved]
  - Acute respiratory failure [Recovering/Resolving]
  - Rales [Recovering/Resolving]
  - Left ventricular failure [Recovering/Resolving]

NARRATIVE: CASE EVENT DATE: 20090101
